FAERS Safety Report 9095318 (Version 1)
Quarter: 2013Q1

REPORT INFORMATION
  Report Type: Spontaneous
  Country: GB (occurrence: None)
  Receive Date: 20130122
  Receipt Date: 20130122
  Transmission Date: 20140127
  Serious: Yes (Hospitalization)
  Sender: FDA-Public Use
  Company Number: CL-464-2013

PATIENT
  Age: 68 Year
  Sex: Male

DRUGS (3)
  1. METRONIDAZOLE [Suspect]
     Indication: CLOSTRIDIUM DIFFICILE INFECTION
     Dosage: (}21 DAYS),  8 HOURLY
     Route: 048
  2. LENALIDOMIDE [Concomitant]
  3. DEXAMETHASONE [Concomitant]

REACTIONS (3)
  - Treatment failure [None]
  - Diarrhoea [None]
  - Pyrexia [None]
